FAERS Safety Report 13605245 (Version 1)
Quarter: 2017Q2

REPORT INFORMATION
  Report Type: Spontaneous
  Country: US (occurrence: US)
  Receive Date: 20170602
  Receipt Date: 20170602
  Transmission Date: 20170830
  Serious: No
  Sender: FDA-Public Use
  Company Number: US-ACCORD-047522

PATIENT
  Age: 79 Year
  Sex: Male
  Weight: 69.3 kg

DRUGS (3)
  1. MITOMYCIN ACCORD [Suspect]
     Active Substance: MITOMYCIN
     Indication: BLADDER CANCER
     Dosage: ROUTE: BLADDER INSTILLATION, RECEIVED THE 5TH DOSE ON 27-SEP-2016
     Dates: start: 20160830, end: 20161011
  2. LIDOCAINE. [Concomitant]
     Active Substance: LIDOCAINE
  3. OLEA EUROPAEA [Concomitant]
     Indication: PRODUCT USED FOR UNKNOWN INDICATION

REACTIONS (1)
  - Rash [Recovered/Resolved]

NARRATIVE: CASE EVENT DATE: 20160929
